FAERS Safety Report 10784440 (Version 2)
Quarter: 2015Q1

REPORT INFORMATION
  Report Type: Spontaneous
  Country: GB (occurrence: GB)
  Receive Date: 20150211
  Receipt Date: 20150302
  Transmission Date: 20150721
  Serious: Yes (Death, Life-Threatening, Hospitalization)
  Sender: FDA-Public Use
  Company Number: GB-ACCORD-028526

PATIENT
  Age: 85 Year
  Sex: Male

DRUGS (10)
  1. AMLODIPINE [Concomitant]
     Active Substance: AMLODIPINE BESYLATE
  2. XARELTO [Interacting]
     Active Substance: RIVAROXABAN
     Indication: ATRIAL FIBRILLATION
     Route: 048
     Dates: start: 20141219, end: 20141221
  3. BISOPROLOL [Concomitant]
     Active Substance: BISOPROLOL
  4. OMEPRAZOLE. [Concomitant]
     Active Substance: OMEPRAZOLE
  5. SIMVASTATIN. [Concomitant]
     Active Substance: SIMVASTATIN
  6. ACETYLSALICYLIC ACID [Concomitant]
     Active Substance: ASPIRIN
     Indication: CORONARY ARTERY DISEASE
     Dosage: LONG TERM
  7. NICORANDIL [Concomitant]
     Active Substance: NICORANDIL
  8. ISOSORBIDE [Concomitant]
     Active Substance: ISOSORBIDE
  9. CLOPIDOGREL [Suspect]
     Active Substance: CLOPIDOGREL BISULFATE
     Indication: CHEST PAIN
     Dosage: 600 MG LOADING DOSE ON 17-DEC-2014 AND 75 MG FOR 2 DAYS ON 18 AND 19-DEC-2014.
     Dates: start: 20141217, end: 20141219
  10. LOSARTAN [Concomitant]
     Active Substance: LOSARTAN

REACTIONS (8)
  - Atrial fibrillation [Unknown]
  - Myocardial infarction [Fatal]
  - Gastrointestinal haemorrhage [Unknown]
  - Seizure [Unknown]
  - Lower respiratory tract infection [Unknown]
  - Haemorrhage intracranial [Unknown]
  - Drug interaction [Unknown]
  - Haematuria [Unknown]

NARRATIVE: CASE EVENT DATE: 20141221
